FAERS Safety Report 16016773 (Version 2)
Quarter: 2020Q3

REPORT INFORMATION
  Report Type: Spontaneous
  Country: US (occurrence: US)
  Receive Date: 20190228
  Receipt Date: 20200824
  Transmission Date: 20201102
  Serious: No
  Sender: FDA-Public Use
  Company Number: US-BIOGEN-2019BI00702676

PATIENT
  Sex: Male

DRUGS (9)
  1. TOLTERODINE TARTRATE. [Concomitant]
     Active Substance: TOLTERODINE TARTRATE
     Route: 050
  2. TECFIDERA [Suspect]
     Active Substance: DIMETHYL FUMARATE
     Indication: MULTIPLE SCLEROSIS
     Dosage: TAKE 1 CAPSULE (240MG)  BY MOUTH TWICE DAILY (MAINTENANCE DOSE)
     Route: 050
     Dates: start: 20140729
  3. OXCARBAZEPINE. [Concomitant]
     Active Substance: OXCARBAZEPINE
     Route: 050
  4. FAMOTIDINE. [Concomitant]
     Active Substance: FAMOTIDINE
     Route: 050
  5. DETROL [Concomitant]
     Active Substance: TOLTERODINE TARTRATE
     Route: 050
  6. DOXAZOSIN MESYLATE. [Concomitant]
     Active Substance: DOXAZOSIN MESYLATE
     Route: 050
  7. COLESTIPOL HCL [Concomitant]
     Active Substance: COLESTIPOL HYDROCHLORIDE
     Route: 050
  8. CARBAMAZEPIN [Concomitant]
     Active Substance: CARBAMAZEPINE
     Route: 050
  9. URINOZINC [Concomitant]
     Route: 050

REACTIONS (1)
  - Multiple sclerosis [Not Recovered/Not Resolved]
